FAERS Safety Report 4264006-8 (Version None)
Quarter: 2004Q1

REPORT INFORMATION
  Report Type: 
  Country: None (occurrence: None)
  Receive Date: 20040106
  Receipt Date: 20040106
  Transmission Date: 20041129
  Serious: No
  Sender: FDA-Public Use
  Company Number: None

PATIENT
  Sex: Male

DRUGS (4)
  1. METFORMIN HCL [Suspect]
     Indication: DIABETES MELLITUS
     Dosage: ONE TABLET TWICE A DAY
     Dates: start: 20030801, end: 20031101
  2. NORVASC [Concomitant]
  3. DIOVAN HCT [Concomitant]
  4. ZOCOR [Concomitant]

REACTIONS (1)
  - BLOOD GLUCOSE INCREASED [None]
